FAERS Safety Report 8394964-1 (Version None)
Quarter: 2012Q2

REPORT INFORMATION
  Report Type: 
  Country: None (occurrence: None)
  Receive Date: 20120530
  Receipt Date: 20120128
  Transmission Date: 20120825
  Serious: No
  Sender: FDA-Public Use
  Company Number: US-GLAXOSMITHKLINE-A0963836A

PATIENT
  Age: 36 Year
  Sex: Female

DRUGS (1)
  1. FLOLAN [Suspect]
     Dosage: 88NGKM UNKNOWN
     Route: 065
     Dates: start: 20101207

REACTIONS (6)
  - DYSPNOEA [None]
  - NAUSEA [None]
  - VOMITING [None]
  - CHEST DISCOMFORT [None]
  - DIARRHOEA [None]
  - RETCHING [None]
